FAERS Safety Report 14856715 (Version 1)
Quarter: 2018Q2

REPORT INFORMATION
  Report Type: Spontaneous
  Country: US (occurrence: US)
  Receive Date: 20180507
  Receipt Date: 20180507
  Transmission Date: 20180711
  Serious: No
  Sender: FDA-Public Use
  Company Number: US-ROCHE-1998726

PATIENT
  Sex: Female

DRUGS (14)
  1. NOVOLOG [Concomitant]
     Active Substance: INSULIN ASPART
  2. ASPIRIN. [Concomitant]
     Active Substance: ASPIRIN
  3. BUMETANIDE. [Concomitant]
     Active Substance: BUMETANIDE
  4. PREDNISONE. [Concomitant]
     Active Substance: PREDNISONE
  5. METRONIDAZOL [Concomitant]
     Active Substance: METRONIDAZOLE
  6. AZITHROMYCIN ANHYDROUS. [Concomitant]
     Active Substance: AZITHROMYCIN ANHYDROUS
  7. TOUJEO [Concomitant]
     Active Substance: INSULIN GLARGINE
  8. ESBRIET [Suspect]
     Active Substance: PIRFENIDONE
     Indication: INTERSTITIAL LUNG DISEASE
     Dosage: ONGOING
     Route: 048
     Dates: start: 20170628
  9. AMLODIPINE [Concomitant]
     Active Substance: AMLODIPINE BESYLATE
  10. CARVEDILOL. [Concomitant]
     Active Substance: CARVEDILOL
     Route: 065
  11. NITROGLYCERIN. [Concomitant]
     Active Substance: NITROGLYCERIN
     Dosage: ER
     Route: 065
  12. TIMOLOL. [Concomitant]
     Active Substance: TIMOLOL
  13. ROSUVASTATIN CALCIUM. [Concomitant]
     Active Substance: ROSUVASTATIN CALCIUM
  14. LISINOPRIL. [Concomitant]
     Active Substance: LISINOPRIL

REACTIONS (1)
  - Hot flush [Unknown]
